FAERS Safety Report 18016255 (Version 4)
Quarter: 2021Q4

REPORT INFORMATION
  Report Type: Spontaneous
  Country: JP (occurrence: JP)
  Receive Date: 20200713
  Receipt Date: 20211122
  Transmission Date: 20220303
  Serious: Yes (Hospitalization)
  Sender: FDA-Public Use
  Company Number: JP-ELI_LILLY_AND_COMPANY-JP202007003366

PATIENT
  Age: 6 Year
  Sex: Male
  Weight: 15.3 kg

DRUGS (25)
  1. ADCIRCA [Suspect]
     Active Substance: TADALAFIL
     Indication: Pulmonary arterial hypertension
     Dosage: 15 MG, UNKNOWN
     Route: 065
     Dates: start: 20171117, end: 20180913
  2. ADCIRCA [Suspect]
     Active Substance: TADALAFIL
     Dosage: 16 MG, DAILY
     Route: 065
     Dates: start: 20180914
  3. UPTRAVI [Suspect]
     Active Substance: SELEXIPAG
     Indication: Pulmonary arterial hypertension
     Dosage: 0.06 MG, BID
     Route: 048
     Dates: start: 20180116, end: 20180126
  4. UPTRAVI [Suspect]
     Active Substance: SELEXIPAG
     Dosage: 0.12 MG, BID
     Route: 048
     Dates: start: 20180215, end: 20180315
  5. UPTRAVI [Suspect]
     Active Substance: SELEXIPAG
     Dosage: 0.36 MG, BID
     Route: 048
     Dates: start: 20180316, end: 20180417
  6. UPTRAVI [Suspect]
     Active Substance: SELEXIPAG
     Dosage: 0.48 MG, BID
     Route: 048
     Dates: start: 20180418, end: 20180515
  7. UPTRAVI [Suspect]
     Active Substance: SELEXIPAG
     Dosage: 0.3 MG, BID
     Route: 048
     Dates: start: 20180516, end: 20180612
  8. UPTRAVI [Suspect]
     Active Substance: SELEXIPAG
     Dosage: 0.36 MG, BID
     Route: 048
     Dates: start: 20180613, end: 20180710
  9. UPTRAVI [Suspect]
     Active Substance: SELEXIPAG
     Dosage: 0.84 MG
     Route: 048
     Dates: start: 20180711, end: 20180816
  10. UPTRAVI [Suspect]
     Active Substance: SELEXIPAG
     Dosage: 0.48 MG, BID
     Route: 048
     Dates: start: 20180817, end: 20180913
  11. UPTRAVI [Suspect]
     Active Substance: SELEXIPAG
     Dosage: 0.512 MG, BID
     Route: 048
     Dates: start: 20180914
  12. OPSUMIT [Concomitant]
     Active Substance: MACITENTAN
     Indication: Pulmonary arterial hypertension
     Dosage: 3 MG
     Dates: start: 20171116, end: 20180913
  13. OPSUMIT [Concomitant]
     Active Substance: MACITENTAN
     Dosage: 3.2 MG
     Dates: start: 20180914
  14. FUROSEMIDE [Concomitant]
     Active Substance: FUROSEMIDE
     Indication: Product used for unknown indication
     Dosage: 15 MG
     Dates: start: 20171116, end: 20180913
  15. FUROSEMIDE [Concomitant]
     Active Substance: FUROSEMIDE
     Dosage: 16 MG
     Dates: start: 20180914
  16. SPIRONOLACTONE [Concomitant]
     Active Substance: SPIRONOLACTONE
     Indication: Product used for unknown indication
     Dosage: UNK
     Dates: start: 20171116
  17. ENALAPRIL MALEATE [Concomitant]
     Active Substance: ENALAPRIL MALEATE
     Indication: Product used for unknown indication
     Dosage: 3 MG
     Dates: start: 20171116, end: 20180913
  18. ENALAPRIL MALEATE [Concomitant]
     Active Substance: ENALAPRIL MALEATE
     Dosage: 3.2 MG
     Dates: start: 20180914
  19. WARFARIN POTASSIUM [Concomitant]
     Active Substance: WARFARIN POTASSIUM
     Indication: Product used for unknown indication
     Dosage: 1.4 MG
     Dates: start: 20170816, end: 20180122
  20. WARFARIN POTASSIUM [Concomitant]
     Active Substance: WARFARIN POTASSIUM
     Dosage: 1.4 MG
     Dates: start: 20180125, end: 20180913
  21. WARFARIN POTASSIUM [Concomitant]
     Active Substance: WARFARIN POTASSIUM
     Dosage: 1.5 MG
     Dates: start: 20180914
  22. ASPIRIN [Concomitant]
     Active Substance: ASPIRIN
     Indication: Product used for unknown indication
     Dosage: 75 MG
     Dates: start: 20171116, end: 20180913
  23. ASPIRIN [Concomitant]
     Active Substance: ASPIRIN
     Dosage: 80 MG
     Dates: start: 20180914
  24. BERAPROST SODIUM [Concomitant]
     Active Substance: BERAPROST SODIUM
     Indication: Pulmonary arterial hypertension
     Dosage: 30 UG
     Dates: start: 20171116, end: 20180116
  25. BERAPROST SODIUM [Concomitant]
     Active Substance: BERAPROST SODIUM
     Dosage: 30 UG
     Dates: start: 20180122, end: 20180214

REACTIONS (6)
  - Hypoglycaemia [Recovered/Resolved]
  - Bronchitis [Recovered/Resolved]
  - Pyrexia [Recovered/Resolved]
  - Vomiting [Recovered/Resolved]
  - Cough [Unknown]
  - Off label use [Unknown]

NARRATIVE: CASE EVENT DATE: 20180121
